FAERS Safety Report 24986651 (Version 2)
Quarter: 2025Q1

REPORT INFORMATION
  Report Type: Spontaneous
  Country: GB (occurrence: GB)
  Receive Date: 20250219
  Receipt Date: 20250313
  Transmission Date: 20250409
  Serious: Yes (Life-Threatening, Hospitalization, Other)
  Sender: ELI LILLY AND COMPANY
  Company Number: None

PATIENT
  Sex: Male
  Weight: 110 kg

DRUGS (1)
  1. MOUNJARO [Suspect]
     Active Substance: TIRZEPATIDE
     Indication: Product used for unknown indication
     Dosage: UNK UNK, WEEKLY (1/W)
     Route: 065
     Dates: start: 202411, end: 20250202

REACTIONS (5)
  - Angina pectoris [Recovered/Resolved]
  - Cardiac arrest [Unknown]
  - Acute myocardial infarction [Unknown]
  - Liver function test abnormal [Unknown]
  - Urine output decreased [Unknown]

NARRATIVE: CASE EVENT DATE: 20250208
